FAERS Safety Report 10480991 (Version 1)
Quarter: 2014Q3

REPORT INFORMATION
  Report Type: Spontaneous
  Country: US (occurrence: None)
  Receive Date: 20140924
  Receipt Date: 20140924
  Transmission Date: 20150326
  Serious: Yes (Other)
  Sender: FDA-Public Use
  Company Number: 2009S1001780

PATIENT
  Age: 71 Year
  Sex: Female

DRUGS (8)
  1. ACCUPRIL [Concomitant]
     Active Substance: QUINAPRIL HYDROCHLORIDE
  2. PHOSPHO-SODA [Suspect]
     Active Substance: SODIUM PHOSPHATE, DIBASIC\SODIUM PHOSPHATE, MONOBASIC
     Indication: COLONOSCOPY
     Route: 048
     Dates: start: 20070620, end: 20070621
  3. CENTRUM [Concomitant]
     Active Substance: VITAMINS
  4. FLEET [Suspect]
     Active Substance: BISACODYL\GLYCERIN\MINERAL OIL\SODIUM PHOSPHATE, DIBASIC\SODIUM PHOSPHATE, MONOBASIC
     Indication: COLONOSCOPY
  5. NORVASC [Concomitant]
     Active Substance: AMLODIPINE BESYLATE
  6. DIOVAN HCT (HYDROCHLOROTHIAZIDE, VALSARTAN) [Concomitant]
  7. ASPIRIN (ACETYLSALICYLIC ACID) [Concomitant]
     Active Substance: ASPIRIN
  8. ZETIA [Concomitant]
     Active Substance: EZETIMIBE

REACTIONS (23)
  - Renal impairment [None]
  - Hiatus hernia [None]
  - Renal failure chronic [None]
  - Abdominal distension [None]
  - Renal cyst [None]
  - Renal failure acute [None]
  - Asthenia [None]
  - Haemoglobin decreased [None]
  - Nephrocalcinosis [None]
  - Fatigue [None]
  - Epigastric discomfort [None]
  - Nausea [None]
  - Vomiting [None]
  - Hunger [None]
  - Nephrolithiasis [None]
  - Tremor [None]
  - Dyspepsia [None]
  - Eructation [None]
  - Malaise [None]
  - Nervousness [None]
  - Nephrogenic anaemia [None]
  - Pyelocaliectasis [None]
  - Peripheral vascular disorder [None]

NARRATIVE: CASE EVENT DATE: 200706
